FAERS Safety Report 14507627 (Version 5)
Quarter: 2020Q2

REPORT INFORMATION
  Report Type: Spontaneous
  Country: US (occurrence: US)
  Receive Date: 20180208
  Receipt Date: 20200501
  Transmission Date: 20200713
  Serious: No
  Sender: FDA-Public Use
  Company Number: US-ACTELION-A-NJ2018-167327

PATIENT
  Age: 52 Year
  Sex: Male

DRUGS (2)
  1. OPSUMIT [Suspect]
     Active Substance: MACITENTAN
     Indication: PULMONARY ARTERIAL HYPERTENSION
     Dosage: 10 MG, UNK
     Route: 048
     Dates: start: 20171217
  2. INSULIN [Concomitant]
     Active Substance: INSULIN NOS

REACTIONS (5)
  - Oedema [Unknown]
  - Hypoaesthesia [Unknown]
  - Rectal haemorrhage [Unknown]
  - Peripheral swelling [Unknown]
  - Memory impairment [Unknown]

NARRATIVE: CASE EVENT DATE: 201808
